FAERS Safety Report 5332902-6 (Version None)
Quarter: 2007Q2

REPORT INFORMATION
  Report Type: 
  Country: None (occurrence: None)
  Receive Date: 20070523
  Receipt Date: 20070515
  Transmission Date: 20071010
  Serious: Yes (Other)
  Sender: FDA-Public Use
  Company Number: US-JNJFOC-20070300596

PATIENT
  Sex: Male
  Weight: 59 kg

DRUGS (13)
  1. REMICADE [Suspect]
     Route: 042
  2. REMICADE [Suspect]
     Route: 042
  3. REMICADE [Suspect]
     Route: 042
  4. REMICADE [Suspect]
     Indication: CROHN'S DISEASE
     Route: 042
  5. ACETAMINOPHEN [Concomitant]
  6. ACETAMINOPHEN [Concomitant]
  7. ACETAMINOPHEN [Concomitant]
  8. ACETAMINOPHEN [Concomitant]
     Indication: PREMEDICATION
  9. DIPHENHYDRAMINE HCL [Concomitant]
  10. DIPHENHYDRAMINE HCL [Concomitant]
  11. DIPHENHYDRAMINE HCL [Concomitant]
  12. DIPHENHYDRAMINE HCL [Concomitant]
     Indication: PREMEDICATION
  13. SOLU-MEDROL [Concomitant]
     Indication: PREMEDICATION
     Route: 042

REACTIONS (1)
  - DERMATITIS [None]
